FAERS Safety Report 26151085 (Version 1)
Quarter: 2025Q4

REPORT INFORMATION
  Report Type: Spontaneous
  Country: US (occurrence: None)
  Receive Date: 20251212
  Receipt Date: 20251212
  Transmission Date: 20260118
  Serious: Yes (Hospitalization)
  Sender: FDA-CTU
  Company Number: None

PATIENT
  Age: 71 Year
  Sex: Male

DRUGS (10)
  1. BOSULIF [Suspect]
     Active Substance: BOSUTINIB MONOHYDRATE
     Dosage: OTHER FREQUENCY : DAILY WITH FOOD;
     Route: 048
     Dates: start: 20231009
  2. AMLODIPINE [Concomitant]
     Active Substance: AMLODIPINE BESYLATE
  3. ASPIRIN [Concomitant]
     Active Substance: ASPIRIN
  4. AZELASTINE [Concomitant]
     Active Substance: AZELASTINE
  5. CALCIUM\CHOLECALCIFEROL [Concomitant]
     Active Substance: CALCIUM\CHOLECALCIFEROL
  6. CLOTRIMETA CRE [Concomitant]
  7. DULOXETINE [Concomitant]
     Active Substance: DULOXETINE
  8. ELIQUIS [Concomitant]
     Active Substance: APIXABAN
  9. FLOMAX [Concomitant]
     Active Substance: TAMSULOSIN HYDROCHLORIDE
  10. IMATINIB [Concomitant]
     Active Substance: IMATINIB

REACTIONS (1)
  - Hospitalisation [None]

NARRATIVE: CASE EVENT DATE: 20251210
